FAERS Safety Report 5116931-3 (Version None)
Quarter: 2006Q3

REPORT INFORMATION
  Report Type: 
  Country: None (occurrence: None)
  Receive Date: 20060925
  Receipt Date: 20060908
  Transmission Date: 20061208
  Serious: Yes (Hospitalization)
  Sender: FDA-Public Use
  Company Number: DYR2006005

PATIENT
  Age: 64 Year
  Sex: Female

DRUGS (2)
  1. HYDROCHLOROTHIAZIDE-TRIAMTERENE (HCZ-TMT) THERAPY [Suspect]
     Indication: HYPERTENSION
     Dosage: HCZ 25MG - TMT 50 MG
  2. HYDROCHLORIDE 25 MG/DAY THERAPY [Suspect]
     Indication: HYPERTENSION
     Dosage: 25 MG

REACTIONS (6)
  - ACUTE RESPIRATORY FAILURE [None]
  - DYSPNOEA [None]
  - FOAMING AT MOUTH [None]
  - HYPERHIDROSIS [None]
  - MULTI-ORGAN DISORDER [None]
  - MYALGIA [None]
